FAERS Safety Report 10744997 (Version 1)
Quarter: 2015Q1

REPORT INFORMATION
  Report Type: Spontaneous
  Country: US (occurrence: None)
  Receive Date: 20150126
  Receipt Date: 20150126
  Transmission Date: 20150721
  Serious: Yes (Life-Threatening, Hospitalization, Disabling, Other)
  Sender: FDA-Public Use
  Company Number: None

PATIENT
  Age: 74 Year
  Sex: Female
  Weight: 58.51 kg

DRUGS (10)
  1. CLOPIDOGREL BISULFATE. [Concomitant]
     Active Substance: CLOPIDOGREL BISULFATE
  2. SERTRALINE [Concomitant]
     Active Substance: SERTRALINE HYDROCHLORIDE
  3. DEFIBRILLATOR IMPLANTED [Concomitant]
  4. ASPIRIN. [Concomitant]
     Active Substance: ASPIRIN
  5. CPAP [Concomitant]
     Active Substance: DEVICE
  6. FORTEO [Suspect]
     Active Substance: TERIPARATIDE
     Indication: OSTEOPOROSIS
     Dosage: 1XDAILY, BY INJECTION ?
     Dates: start: 20120421, end: 20140421
  7. VITAMIN D [Concomitant]
     Active Substance: CHOLECALCIFEROL
  8. METOPOLOL TARTRATE [Concomitant]
  9. ATORVASTATIN [Concomitant]
     Active Substance: ATORVASTATIN
  10. LISINOPRIL. [Concomitant]
     Active Substance: LISINOPRIL

REACTIONS (3)
  - Hypercalcaemia [None]
  - Alopecia [None]
  - Cardiac arrest [None]

NARRATIVE: CASE EVENT DATE: 20140427
